FAERS Safety Report 5857460-9 (Version None)
Quarter: 2008Q3

REPORT INFORMATION
  Report Type: 
  Country: None (occurrence: None)
  Receive Date: 20080826
  Receipt Date: 20080818
  Transmission Date: 20090109
  Serious: Yes (Hospitalization)
  Sender: FDA-Public Use
  Company Number: GB-NOVOPROD-278572

PATIENT
  Age: 76 Year
  Sex: Female

DRUGS (10)
  1. PRANDIN [Suspect]
     Indication: DRUG USE FOR UNKNOWN INDICATION
     Dosage: 1 MG, QD
     Route: 048
  2. TRIMETHOPRIM [Suspect]
     Indication: DRUG USE FOR UNKNOWN INDICATION
     Dosage: 200 MG, QD
     Route: 048
  3. AMLODIPINE [Concomitant]
     Dosage: 5 MG, QD
  4. ASPIRIN [Concomitant]
     Dosage: 75 MG, QD
     Route: 048
  5. CLOTRIMAZOLE [Concomitant]
     Route: 061
  6. DOXAZOSIN MESYLATE [Concomitant]
     Dosage: 4 MG, QD
  7. ENALAPRIL MALEATE [Concomitant]
     Dosage: 20 MG, QD
  8. FUROSEMIDE [Concomitant]
     Dosage: 40 MG, QD
     Route: 048
  9. METFORMIN HCL [Concomitant]
     Dosage: 1 G, QD
     Route: 048
  10. TOLTERODINE TARTRATE [Concomitant]
     Dosage: 2 MG, QD
     Route: 048

REACTIONS (2)
  - HYPERMETROPIA [None]
  - HYPOGLYCAEMIA [None]
